FAERS Safety Report 25853084 (Version 2)
Quarter: 2025Q4

REPORT INFORMATION
  Report Type: Spontaneous
  Country: EU (occurrence: EU)
  Receive Date: 20250926
  Receipt Date: 20251015
  Transmission Date: 20260118
  Serious: Yes (Hospitalization, Other)
  Sender: ALEXION PHARMACEUTICALS
  Company Number: EU-SUN PHARMACEUTICAL INDUSTRIES LTD-2025RR-527910

PATIENT
  Sex: Male

DRUGS (6)
  1. IMJUDO [Suspect]
     Active Substance: TREMELIMUMAB\TREMELIMUMAB-ACTL
     Indication: Transitional cell carcinoma
     Dosage: SIX CYCLES
     Route: 065
  2. IMFINZI [Suspect]
     Active Substance: DURVALUMAB
     Indication: Transitional cell carcinoma
     Dosage: SIX CYCLES
     Route: 065
  3. GEMCITABINE [Suspect]
     Active Substance: GEMCITABINE
     Indication: Transitional cell carcinoma
     Dosage: SIX CYCLES
     Route: 065
  4. GEMCITABINE [Suspect]
     Active Substance: GEMCITABINE
     Dosage: SIX CYCLES
     Route: 065
  5. CARBOPLATIN [Suspect]
     Active Substance: CARBOPLATIN
     Indication: Transitional cell carcinoma
     Dosage: SIX CYCLES
     Route: 065
  6. CARBOPLATIN [Suspect]
     Active Substance: CARBOPLATIN
     Dosage: SIX CYCLES
     Route: 065

REACTIONS (9)
  - Pneumonia [Unknown]
  - Ileus paralytic [Recovered/Resolved]
  - Mucosal disorder [Unknown]
  - Nausea [Unknown]
  - Decreased appetite [Unknown]
  - Tinnitus [Unknown]
  - Anaemia [Unknown]
  - Urinary tract infection [Unknown]
  - Disease progression [Unknown]
